FAERS Safety Report 9156358 (Version 1)
Quarter: 2013Q1

REPORT INFORMATION
  Report Type: Spontaneous
  Country: US (occurrence: None)
  Receive Date: 20130307
  Receipt Date: 20130307
  Transmission Date: 20140127
  Serious: Yes (Hospitalization)
  Sender: FDA-Public Use
  Company Number: None

PATIENT
  Age: 19 Year
  Sex: Female
  Weight: 69.2 kg

DRUGS (1)
  1. CYMBALTA [Suspect]
     Route: 048
     Dates: start: 20120201, end: 20130214

REACTIONS (3)
  - Swollen tongue [None]
  - Dysphagia [None]
  - Drooling [None]
